FAERS Safety Report 6581276-1 (Version None)
Quarter: 2010Q1

REPORT INFORMATION
  Report Type: 
  Country: None (occurrence: None)
  Receive Date: 20100215
  Receipt Date: 20100209
  Transmission Date: 20100710
  Serious: Yes (Other)
  Sender: FDA-Public Use
  Company Number: US-TEVA-223936USA

PATIENT
  Sex: Female

DRUGS (1)
  1. ESTROPIPATE TABLET 0.75MG,1.5MG,3MG [Suspect]

REACTIONS (2)
  - DYSPNOEA [None]
  - SWOLLEN TONGUE [None]
